FAERS Safety Report 6913891-7 (Version None)
Quarter: 2010Q3

REPORT INFORMATION
  Report Type: 
  Country: None (occurrence: None)
  Receive Date: 20100809
  Receipt Date: 20100802
  Transmission Date: 20110219
  Serious: Yes (Other)
  Sender: FDA-Public Use
  Company Number: US-BAYER-201018670BCC

PATIENT
  Age: 67 Year
  Sex: Male
  Weight: 75 kg

DRUGS (1)
  1. BAYER BACK + BODY ASPIRIN [Suspect]
     Indication: BACK PAIN
     Dosage: TOOK 4 TO 5 TABLETS, 3 TO 4 TIMES A DAY / BOTTLE COUNT 100S
     Route: 048
     Dates: start: 20100731

REACTIONS (2)
  - NAUSEA [None]
  - VOMITING [None]
